FAERS Safety Report 5638083-3 (Version None)
Quarter: 2008Q1

REPORT INFORMATION
  Report Type: 
  Country: None (occurrence: None)
  Receive Date: 20080222
  Receipt Date: 20080222
  Transmission Date: 20080703
  Serious: Yes (Other)
  Sender: FDA-Public Use
  Company Number: None

PATIENT
  Age: 63 Year
  Sex: Female
  Weight: 77.1115 kg

DRUGS (2)
  1. ENBREL [Suspect]
     Indication: ARTHRITIS
     Dosage: 1 PREFILLED SYRINGE TWICE WEEKLY
     Dates: start: 20070101, end: 20080116
  2. ENBREL [Suspect]
     Indication: PSORIASIS
     Dosage: 1 PREFILLED SYRINGE TWICE WEEKLY
     Dates: start: 20070101, end: 20080116

REACTIONS (3)
  - COUGH [None]
  - IMMUNE SYSTEM DISORDER [None]
  - VIRAL INFECTION [None]
